FAERS Safety Report 22318580 (Version 2)
Quarter: 2023Q2

REPORT INFORMATION
  Report Type: Report from Study
  Country: US (occurrence: US)
  Receive Date: 20230515
  Receipt Date: 20230613
  Transmission Date: 20230721
  Serious: Yes (Hospitalization)
  Sender: FDA-Public Use
  Company Number: US-SA-SAC20230504000134

PATIENT
  Age: 11 Month
  Sex: Male

DRUGS (4)
  1. EFTRENONACOG ALFA [Suspect]
     Active Substance: EFTRENONACOG ALFA
     Indication: Factor IX deficiency
     Dosage: 1082 U, (+/-10%) TIW (MONDAY, WEDNESDAY, FRIDAY) FOR PROPHYLAXIS)
     Route: 042
     Dates: start: 2023, end: 2023
  2. EFTRENONACOG ALFA [Suspect]
     Active Substance: EFTRENONACOG ALFA
     Indication: Factor IX deficiency
     Dosage: 1082 U, (+/-10%) TIW (MONDAY, WEDNESDAY, FRIDAY) FOR PROPHYLAXIS)
     Route: 042
     Dates: start: 2023, end: 2023
  3. EFTRENONACOG ALFA [Suspect]
     Active Substance: EFTRENONACOG ALFA
     Dosage: 1060 U (+/- 10%), BIW (ON TUESDAY AND FRIDAY)
     Route: 042
     Dates: start: 2023
  4. EFTRENONACOG ALFA [Suspect]
     Active Substance: EFTRENONACOG ALFA
     Dosage: 1060 U (+/- 10%), BIW (ON TUESDAY AND FRIDAY)
     Route: 042
     Dates: start: 2023

REACTIONS (2)
  - Hospitalisation [Recovering/Resolving]
  - Rash macular [Unknown]

NARRATIVE: CASE EVENT DATE: 20230101
